FAERS Safety Report 6804048-9 (Version None)
Quarter: 2010Q2

REPORT INFORMATION
  Report Type: 
  Country: None (occurrence: None)
  Receive Date: 20100628
  Receipt Date: 20061019
  Transmission Date: 20101027
  Serious: No
  Sender: FDA-Public Use
  Company Number: US-PFIZER INC-2006130599

PATIENT
  Sex: Male
  Weight: 52.62 kg

DRUGS (7)
  1. SUTENT [Suspect]
     Indication: RENAL CANCER
     Dates: start: 20060920
  2. OXYCODONE HCL [Concomitant]
  3. TYLENOL [Concomitant]
  4. WARFARIN SODIUM [Concomitant]
  5. COMPAZINE [Concomitant]
  6. ZOFRAN [Concomitant]
  7. FENTANYL [Concomitant]

REACTIONS (5)
  - ABDOMINAL PAIN [None]
  - BACK PAIN [None]
  - BLOOD SODIUM DECREASED [None]
  - FATIGUE [None]
  - NAUSEA [None]
